FAERS Safety Report 25037003 (Version 1)
Quarter: 2025Q1

REPORT INFORMATION
  Report Type: Report from Study
  Country: JP (occurrence: JP)
  Receive Date: 20250304
  Receipt Date: 20250304
  Transmission Date: 20250409
  Serious: Yes (Other)
  Sender: PFIZER
  Company Number: JP-PFIZER INC-2015SE90244

PATIENT
  Age: 64 Year
  Sex: Male
  Weight: 80 kg

DRUGS (28)
  1. MEROPENEM [Suspect]
     Active Substance: MEROPENEM
     Dosage: 1 G, 2X/DAY
     Route: 042
     Dates: start: 20130409
  2. VFEND [Suspect]
     Active Substance: VORICONAZOLE
     Dosage: 200 MG, 2X/DAY
     Route: 048
     Dates: start: 20130419, end: 20130517
  3. SOLU-CORTEF [Suspect]
     Active Substance: HYDROCORTISONE SODIUM SUCCINATE
     Indication: Prophylaxis against graft versus host disease
     Dosage: 40 MG, 2X/DAY
     Route: 051
     Dates: start: 20130410, end: 20130413
  4. SOLU-MEDROL [Suspect]
     Active Substance: METHYLPREDNISOLONE SODIUM SUCCINATE
     Indication: Prophylaxis against graft versus host disease
     Dosage: 40 MG, 2X/DAY
     Route: 051
     Dates: start: 20130421, end: 20130502
  5. CUBICIN [Suspect]
     Active Substance: DAPTOMYCIN
     Indication: Sepsis
     Route: 041
     Dates: start: 20130409, end: 20130418
  6. CUBICIN [Suspect]
     Active Substance: DAPTOMYCIN
     Route: 041
     Dates: start: 20130419, end: 20130422
  7. OMEPRAZOLE SODIUM [Suspect]
     Active Substance: OMEPRAZOLE SODIUM
     Indication: Prophylaxis
     Dosage: 20 MG, 2X/DAY
     Route: 042
     Dates: start: 20130409, end: 20130503
  8. FOSCAVIR [Suspect]
     Active Substance: FOSCARNET SODIUM
     Indication: Prophylaxis
     Dosage: 1 G, 3X/DAY
     Route: 042
     Dates: start: 20130416, end: 20130521
  9. JANUVIA [Suspect]
     Active Substance: SITAGLIPTIN PHOSPHATE
     Indication: Product used for unknown indication
     Dosage: 50 MG, 1X/DAY
     Route: 048
     Dates: start: 20130409, end: 20130424
  10. CEFEPIME HYDROCHLORIDE [Suspect]
     Active Substance: CEFEPIME HYDROCHLORIDE
     Indication: Sepsis
     Dosage: 2 G, 1X/DAY
     Route: 041
     Dates: start: 20130326, end: 20130408
  11. AMIKACIN SULFATE [Suspect]
     Active Substance: AMIKACIN SULFATE
     Indication: Product used for unknown indication
     Dosage: 1.2 G, 1X/DAY
     Route: 051
     Dates: start: 20130409, end: 20130409
  12. PROGRAF [Suspect]
     Active Substance: TACROLIMUS
     Indication: Prophylaxis against graft versus host disease
     Dosage: 0.1 MG/KG, 1X/DAY
     Route: 051
     Dates: start: 20130409, end: 20130409
  13. AMBISOME [Suspect]
     Active Substance: AMPHOTERICIN B
     Indication: Product used for unknown indication
     Dosage: 200 MG, 1X/DAY
     Route: 051
     Dates: start: 20130409, end: 20130409
  14. URSO [Suspect]
     Active Substance: URSODIOL
     Indication: Prophylaxis
     Dosage: 200 MG, 3X/DAY
     Route: 048
     Dates: start: 20130409, end: 20130409
  15. AMMONIUM GLYCYRRHIZATE [Suspect]
     Active Substance: AMMONIUM GLYCYRRHIZATE
     Indication: Product used for unknown indication
     Dosage: 60 ML, 1X/DAY
     Route: 051
     Dates: start: 20130409, end: 20130509
  16. BARACLUDE [Suspect]
     Active Substance: ENTECAVIR
     Indication: Product used for unknown indication
     Dosage: 0.5 MG, 1X/DAY
     Route: 048
     Dates: start: 20130409, end: 20130708
  17. CELLCEPT [Suspect]
     Active Substance: MYCOPHENOLATE MOFETIL
     Indication: Prophylaxis against graft versus host disease
     Dosage: 500 MG, 3X/DAY
     Route: 048
     Dates: start: 20130409, end: 20130518
  18. MICAFUNGIN SODIUM [Suspect]
     Active Substance: MICAFUNGIN SODIUM
     Dosage: 150 MG, 1X/DAY
     Route: 051
     Dates: start: 20130410, end: 20130418
  19. DIGOXIN [Suspect]
     Active Substance: DIGOXIN
     Indication: Prophylaxis
     Dosage: 250 UG, 1X/DAY
     Route: 051
     Dates: start: 20130413, end: 20130413
  20. TRANSAMIN [Suspect]
     Active Substance: TRANEXAMIC ACID
     Indication: Product used for unknown indication
     Dosage: 1 G, 1X/DAY
     Route: 051
     Dates: start: 20130409, end: 20130412
  21. LASIX [Suspect]
     Active Substance: FUROSEMIDE
     Indication: Product used for unknown indication
     Dosage: 20 MG, 1X/DAY
     Route: 051
     Dates: start: 20130409, end: 20130426
  22. FILGRASTIM [Suspect]
     Active Substance: FILGRASTIM
     Indication: Cytopenia
     Dosage: 0.3 MG, 1X/DAY
     Route: 051
     Dates: start: 20130409, end: 20130502
  23. MAGNESIUM SULFATE [Suspect]
     Active Substance: MAGNESIUM SULFATE
     Dosage: 20 MG, 1X/DAY
     Route: 051
     Dates: start: 20130411, end: 20130501
  24. CARPERITIDE [Suspect]
     Active Substance: CARPERITIDE
     Indication: Product used for unknown indication
     Route: 051
     Dates: start: 20130411, end: 20130502
  25. THROMBOMODULIN ALFA [Suspect]
     Active Substance: THROMBOMODULIN ALFA
     Indication: Thrombotic microangiopathy
     Route: 051
     Dates: start: 20130419, end: 20130424
  26. ACYCLOVIR [Suspect]
     Active Substance: ACYCLOVIR
     Indication: Prophylaxis
     Dosage: 250 MG, 1X/DAY
     Route: 051
     Dates: start: 20130410, end: 20130416
  27. AMMONIUM GLYCYRRHIZATE [Suspect]
     Active Substance: AMMONIUM GLYCYRRHIZATE
  28. URSODIOL [Suspect]
     Active Substance: URSODIOL

REACTIONS (8)
  - Cardiac failure acute [Recovering/Resolving]
  - Thrombotic microangiopathy [Recovering/Resolving]
  - Blood urea increased [Recovering/Resolving]
  - Gamma-glutamyltransferase increased [Recovered/Resolved]
  - Weight increased [Recovering/Resolving]
  - Blood alkaline phosphatase increased [Recovering/Resolving]
  - Blood creatinine increased [Recovering/Resolving]
  - Drug ineffective [Unknown]

NARRATIVE: CASE EVENT DATE: 20130411
